FAERS Safety Report 4430540-0 (Version None)
Quarter: 2004Q3

REPORT INFORMATION
  Report Type: 
  Country: None (occurrence: None)
  Receive Date: 20040818
  Receipt Date: 20040805
  Transmission Date: 20050211
  Serious: Yes (Hospitalization)
  Sender: FDA-Public Use
  Company Number: 2004219500GB

PATIENT
  Age: 45 Year
  Sex: Female
  Weight: 58 kg

DRUGS (7)
  1. PHARMORUBICIN RD (EPIRUBICIN HYDROCHLORIDE)POWDER, STERILE [Suspect]
     Indication: BREAST CANCER FEMALE
     Dosage: 105 MG, CYCLIC
     Dates: start: 20040329, end: 20040510
  2. COMPARATOR-DOCETAXEL (DOCETAXEL) INJECTION [Suspect]
     Indication: BREAST CANCER FEMALE
     Dosage: SEE IMAGE
     Dates: start: 20040126, end: 20040308
  3. COMPARATOR-DOCETAXEL (DOCETAXEL) INJECTION [Suspect]
     Indication: BREAST CANCER FEMALE
     Dosage: SEE IMAGE
     Dates: start: 20040329, end: 20040510
  4. LISINOPRIL [Concomitant]
  5. SULFASALAZINE [Concomitant]
  6. RANITIDINE [Concomitant]
  7. PARACETAMOL [Concomitant]

REACTIONS (4)
  - BODY TEMPERATURE INCREASED [None]
  - HEADACHE [None]
  - NEUTROPHIL COUNT DECREASED [None]
  - VOMITING [None]
